FAERS Safety Report 25850368 (Version 1)
Quarter: 2025Q3

REPORT INFORMATION
  Report Type: Spontaneous
  Country: JP (occurrence: JP)
  Receive Date: 20250926
  Receipt Date: 20250926
  Transmission Date: 20251021
  Serious: Yes (Life-Threatening)
  Sender: MERCK SHARP & DOHME LLC
  Company Number: JP-009507513-2330161

PATIENT
  Age: 65 Year
  Sex: Male

DRUGS (1)
  1. KEYTRUDA [Suspect]
     Active Substance: PEMBROLIZUMAB
     Indication: Renal cell carcinoma
     Route: 042
     Dates: start: 20250312, end: 20250728

REACTIONS (1)
  - Diabetic ketoacidosis [Recovered/Resolved]

NARRATIVE: CASE EVENT DATE: 20250829
